FAERS Safety Report 9311268 (Version 7)
Quarter: 2015Q2

REPORT INFORMATION
  Report Type: Spontaneous
  Country: US (occurrence: US)
  Receive Date: 20130528
  Receipt Date: 20150414
  Transmission Date: 20150821
  Serious: Yes (Other)
  Sender: FDA-Public Use
  Company Number: US-PFIZER INC-2013159448

PATIENT
  Age: 62 Year
  Sex: Female

DRUGS (7)
  1. DILANTIN [Suspect]
     Active Substance: PHENYTOIN
     Indication: SEIZURE
     Dosage: 500 MG, 1X/DAY, (100MG CAPSULES, FIVE CAPSULES) EVERY NIGHT AT BED TIME
  2. DILANTIN [Suspect]
     Active Substance: PHENYTOIN
     Dosage: UNK
     Dates: end: 201003
  3. DILANTIN [Suspect]
     Active Substance: PHENYTOIN
     Dosage: 300 MG, 1X/DAY, EVERY NIGHT AT BED TIME
  4. DILANTIN [Suspect]
     Active Substance: PHENYTOIN
     Dosage: 100 MG, 1X/DAY, EVERY NIGHT AT BED TIME
     Dates: end: 2010
  5. DILANTIN [Suspect]
     Active Substance: PHENYTOIN
     Dosage: 400 MG, 1X/DAY, EVERY NIGHT AT BED TIME
  6. DILANTIN [Suspect]
     Active Substance: PHENYTOIN
     Dosage: 200 MG, 1X/DAY, EVERY NIGHT AT BED TIME
  7. DILANTIN [Suspect]
     Active Substance: PHENYTOIN
     Dosage: UNK, 3X/DAY

REACTIONS (2)
  - Cerebral atrophy [Not Recovered/Not Resolved]
  - Stevens-Johnson syndrome [Unknown]
